FAERS Safety Report 9851938 (Version 3)
Quarter: 2014Q2

REPORT INFORMATION
  Report Type: Spontaneous
  Country: US (occurrence: None)
  Receive Date: 20140127
  Receipt Date: 20140506
  Transmission Date: 20141212
  Serious: Yes (Other)
  Sender: FDA-Public Use
  Company Number: 2013US002728

PATIENT
  Age: 58 Year
  Sex: Male
  Weight: 95.1 kg

DRUGS (6)
  1. PONATINIB (AP24534) TABLET [Suspect]
     Indication: CHRONIC MYELOID LEUKAEMIA
     Route: 048
     Dates: start: 20090511
  2. ALLOPURINOL (ALLOPURINOL) [Concomitant]
  3. DIOVAN (VALSARTAN) [Concomitant]
  4. LEVOTHYROXINE (LEVOTHYROXINE SODIUM) [Concomitant]
  5. PRAVASTATIN (PRAVASTATIN SODIUM) [Concomitant]
  6. VIAGRA (SILDENAFIL CITRATE) [Concomitant]

REACTIONS (3)
  - Uveitis [None]
  - Visual acuity reduced [None]
  - Vision blurred [None]
